FAERS Safety Report 5216968-X (Version None)
Quarter: 2007Q1

REPORT INFORMATION
  Report Type: 
  Country: None (occurrence: None)
  Receive Date: 20070119
  Receipt Date: 20070111
  Transmission Date: 20070707
  Serious: Yes (Disabling)
  Sender: FDA-Public Use
  Company Number: GXKR2007KR00714

PATIENT
  Age: 62 Year
  Sex: Female

DRUGS (2)
  1. TRAMCINOLONE DIACETATE (NGX) (TRIAMCINOLONE DIACETATE) UNKNOWN [Suspect]
     Dosage: UNK, UNK, INJECTION NOS
  2. OFLOXACIN (OFLOXACIN) OINTMENT [Concomitant]

REACTIONS (11)
  - ANTERIOR CHAMBER DEGENERATION [None]
  - CONJUNCTIVITIS INFECTIVE [None]
  - DISEASE PROGRESSION [None]
  - EYE ABSCESS [None]
  - EYE DEGENERATIVE DISORDER [None]
  - EYE INFECTION FUNGAL [None]
  - EYE PAIN [None]
  - HYPOPYON [None]
  - PSEUDALLESCHERIA INFECTION [None]
  - RETINAL DETACHMENT [None]
  - VITREOUS OPACITIES [None]
